FAERS Safety Report 23644606 (Version 1)
Quarter: 2024Q1

REPORT INFORMATION
  Report Type: Spontaneous
  Country: NL (occurrence: NL)
  Receive Date: 20240318
  Receipt Date: 20240318
  Transmission Date: 20240409
  Serious: Yes (Life-Threatening, Disabling)
  Sender: FDA-Public Use
  Company Number: None

PATIENT
  Age: 15 Year
  Sex: Female
  Weight: 55 kg

DRUGS (1)
  1. DROSPIRENONE\ETHINYL ESTRADIOL [Suspect]
     Active Substance: DROSPIRENONE\ETHINYL ESTRADIOL
     Indication: Endometriosis
     Dosage: 1 DOSAGE FORM,QD,(1X PER DAY 1 PIECE)
     Route: 065
     Dates: start: 20191114, end: 20231130

REACTIONS (2)
  - Cerebral infarction [Recovering/Resolving]
  - Off label use [Unknown]
